FAERS Safety Report 10149822 (Version 1)
Quarter: 2014Q2

REPORT INFORMATION
  Report Type: Spontaneous
  Country: US (occurrence: US)
  Receive Date: 20140502
  Receipt Date: 20140502
  Transmission Date: 20141212
  Serious: Yes (Other)
  Sender: FDA-Public Use
  Company Number: US-ELI_LILLY_AND_COMPANY-US201404008597

PATIENT
  Sex: Female

DRUGS (2)
  1. EFFIENT [Suspect]
     Indication: STENT PLACEMENT
     Dosage: 60 MG, SINGLE LOADING DOSE
     Route: 048
  2. INSULIN [Concomitant]

REACTIONS (3)
  - Cardiac failure [Unknown]
  - Thrombosis in device [Unknown]
  - Drug dose omission [Unknown]
